FAERS Safety Report 8208921-9 (Version None)
Quarter: 2012Q1

REPORT INFORMATION
  Report Type: 
  Country: None (occurrence: None)
  Receive Date: 20120314
  Receipt Date: 20120228
  Transmission Date: 20120608
  Serious: Yes (Other)
  Sender: FDA-Public Use
  Company Number: GB-WATSON-2011-20049

PATIENT
  Age: 72 Year
  Sex: Female
  Weight: 65.8 kg

DRUGS (5)
  1. FENTANYL-100 [Suspect]
     Indication: PRODUCT USED FOR UNKNOWN INDICATION
     Dosage: UNK
     Route: 062
     Dates: start: 20110919
  2. VELCADE [Suspect]
     Dosage: 1.7 MG/M2, UNKNOWN, DOSAGE FORM LYOPHILIZED POWDER
     Route: 040
     Dates: start: 20110811, end: 20110818
  3. VELCADE [Suspect]
     Dosage: 1.2 MG/M2, UNKNOWN, DOSAGE FORM LYOPHILIZED POWDER
     Route: 040
     Dates: start: 20110912
  4. VELCADE [Suspect]
     Indication: MULTIPLE MYELOMA
     Dosage: 2.2 MG/M2, UNKNOWN, DOSAGE FORM LYOPHILIZED POWDER
     Route: 040
     Dates: start: 20110606, end: 20110808
  5. VELCADE [Suspect]
     Dosage: 0.7 MG/M2, 1/WEEK, DOSAGE FORM LYOPHILIZED POWDER
     Route: 040
     Dates: end: 20110919

REACTIONS (6)
  - AUTONOMIC NEUROPATHY [None]
  - FALL [None]
  - NEUROPATHY PERIPHERAL [None]
  - PARAESTHESIA [None]
  - VISUAL IMPAIRMENT [None]
  - DIZZINESS [None]
